FAERS Safety Report 19933452 (Version 1)
Quarter: 2021Q4

REPORT INFORMATION
  Report Type: Spontaneous
  Country: LT (occurrence: LT)
  Receive Date: 20211008
  Receipt Date: 20211008
  Transmission Date: 20220303
  Serious: Yes (Hospitalization, Other)
  Sender: FDA-Public Use
  Company Number: LT-BRISTOL-MYERS SQUIBB COMPANY-BMS-2021-100554

PATIENT

DRUGS (1)
  1. NIVOLUMAB [Suspect]
     Active Substance: NIVOLUMAB
     Indication: Renal cancer
     Dosage: 240 MILLIGRAM, Q2WK
     Route: 042

REACTIONS (3)
  - Anaemia [Unknown]
  - Pyrexia [Unknown]
  - Ascites [Unknown]

NARRATIVE: CASE EVENT DATE: 20201105
